FAERS Safety Report 8440663-7 (Version None)
Quarter: 2012Q2

REPORT INFORMATION
  Report Type: 
  Country: None (occurrence: None)
  Receive Date: 20120615
  Receipt Date: 20120608
  Transmission Date: 20120825
  Serious: No
  Sender: FDA-Public Use
  Company Number: US-B.I. PHARMACEUTICALS,INC./RIDGEFIELD-2012-BP-10537BP

PATIENT
  Sex: Male

DRUGS (6)
  1. PRADAXA [Suspect]
     Indication: HEART RATE IRREGULAR
  2. UNKNOWN DIURETIC [Concomitant]
     Indication: HYPERTENSION
  3. MINOXIDIL [Concomitant]
  4. LYRICA [Concomitant]
     Indication: NERVOUS SYSTEM DISORDER
     Route: 048
  5. PRADAXA [Suspect]
     Indication: CARDIOVASCULAR EVENT PROPHYLAXIS
     Dosage: 300 MG
     Route: 048
     Dates: start: 20120503
  6. LISINOPRIL [Concomitant]
     Indication: HYPERTENSION
     Route: 048

REACTIONS (2)
  - EPISTAXIS [None]
  - STOMATITIS [None]
